FAERS Safety Report 8637572 (Version 3)
Quarter: 2012Q4

REPORT INFORMATION
  Report Type: Report from Study
  Country: TR (occurrence: TR)
  Receive Date: 20120627
  Receipt Date: 20121128
  Transmission Date: 20130627
  Serious: Yes (Hospitalization)
  Sender: FDA-Public Use
  Company Number: TR-ELI_LILLY_AND_COMPANY-TR201206005093

PATIENT
  Age: 65 Year
  Sex: Male
  Weight: 74 kg

DRUGS (11)
  1. PEMETREXED [Suspect]
     Indication: NON-SMALL CELL LUNG CANCER STAGE III
     Dosage: 500 mg/m2, q21
     Route: 042
     Dates: start: 20120521
  2. CISPLATIN [Suspect]
     Indication: NON-SMALL CELL LUNG CANCER STAGE III
     Dosage: 75 mg/m2, q21
     Route: 042
     Dates: start: 20120521
  3. RADIATION [Suspect]
     Indication: NON-SMALL CELL LUNG CANCER STAGE III
     Dosage: 200 cGY, unknown
     Route: 065
     Dates: start: 20120521
  4. RADIATION [Suspect]
     Dosage: 40 Gy, UNK
  5. FOLIC ACID [Concomitant]
     Indication: PROPHYLAXIS
     Dosage: UNK
  6. VITAMIN B12 [Concomitant]
     Indication: PROPHYLAXIS
     Dosage: UNK
  7. DEXAMETHASONE [Concomitant]
     Indication: PROPHYLAXIS
     Dosage: UNK
  8. ANTEPSIN [Concomitant]
     Indication: MUCOSAL INFLAMMATION
     Dosage: UNK
     Dates: start: 20120528
  9. MIKOSTATIN [Concomitant]
     Indication: MUCOSAL INFLAMMATION
     Dosage: UNK
     Dates: start: 20120604, end: 20120611
  10. NOVALGINE [Concomitant]
     Indication: ODYNOPHAGIA
     Dosage: UNK
     Dates: start: 20120604
  11. KYTRIL [Concomitant]
     Indication: VOMITING
     Dosage: UNK
     Dates: start: 20120528

REACTIONS (4)
  - Weight decreased [Recovering/Resolving]
  - Leukopenia [Recovered/Resolved]
  - Lymphopenia [Recovered/Resolved]
  - Oesophagitis [Recovered/Resolved]
